FAERS Safety Report 9424697 (Version 1)
Quarter: 2013Q3

REPORT INFORMATION
  Report Type: Spontaneous
  Country: SE (occurrence: SE)
  Receive Date: 20130729
  Receipt Date: 20130729
  Transmission Date: 20140515
  Serious: Yes (Other)
  Sender: FDA-Public Use
  Company Number: SE-ELI_LILLY_AND_COMPANY-SE201307007538

PATIENT
  Sex: Male

DRUGS (1)
  1. ZYPREXA [Suspect]
     Indication: SCHIZOAFFECTIVE DISORDER
     Dosage: UNK
     Dates: end: 20121012

REACTIONS (4)
  - Arrhythmia [Unknown]
  - Diabetes mellitus [Unknown]
  - Cognitive disorder [Unknown]
  - Erectile dysfunction [Unknown]
